FAERS Safety Report 6196490-7 (Version None)
Quarter: 2009Q2

REPORT INFORMATION
  Report Type: 
  Country: None (occurrence: None)
  Receive Date: 20090520
  Receipt Date: 20090511
  Transmission Date: 20091009
  Serious: Yes (Hospitalization)
  Sender: FDA-Public Use
  Company Number: AT-JNJFOC-20090502346

PATIENT
  Age: 40 Year
  Sex: Female

DRUGS (14)
  1. RISPERDAL [Suspect]
     Route: 048
  2. RISPERDAL [Suspect]
     Indication: DRUG USE FOR UNKNOWN INDICATION
     Route: 048
  3. HALDOL [Suspect]
     Route: 048
  4. HALDOL [Suspect]
     Route: 048
  5. HALDOL [Suspect]
     Indication: DRUG USE FOR UNKNOWN INDICATION
     Route: 048
  6. ABILIFY [Suspect]
     Route: 048
  7. ABILIFY [Suspect]
     Route: 048
  8. ABILIFY [Suspect]
     Route: 048
  9. ABILIFY [Suspect]
     Route: 048
  10. ABILIFY [Suspect]
     Indication: DRUG USE FOR UNKNOWN INDICATION
     Route: 048
  11. VENLAFAXINE HCL [Concomitant]
     Route: 065
  12. VENLAFAXINE HCL [Concomitant]
     Route: 065
  13. BISOPROLOL FUMARATE [Concomitant]
     Route: 065
  14. DOMINAL [Concomitant]
     Route: 065

REACTIONS (2)
  - GALACTORRHOEA [None]
  - PSYCHOTIC DISORDER [None]
